FAERS Safety Report 6266920-0 (Version None)
Quarter: 2009Q3

REPORT INFORMATION
  Report Type: 
  Country: None (occurrence: None)
  Receive Date: 20090714
  Receipt Date: 20090702
  Transmission Date: 20100115
  Serious: Yes (Other)
  Sender: FDA-Public Use
  Company Number: PHHY2009GB27443

PATIENT
  Sex: Male

DRUGS (3)
  1. CLOZARIL [Suspect]
     Indication: SCHIZOPHRENIA
     Dosage: UNK
     Dates: start: 20090611
  2. CLOZARIL [Suspect]
     Dosage: 100 MG, BID
  3. CLOZARIL [Suspect]
     Dosage: UNK

REACTIONS (7)
  - DIZZINESS [None]
  - DYSPNOEA [None]
  - EXTRASYSTOLES [None]
  - PALPITATIONS [None]
  - PANIC ATTACK [None]
  - SINUS ARRHYTHMIA [None]
  - TACHYCARDIA [None]
